FAERS Safety Report 25868790 (Version 1)
Quarter: 2025Q4

REPORT INFORMATION
  Report Type: Report from Study
  Country: IN (occurrence: IN)
  Receive Date: 20251001
  Receipt Date: 20251001
  Transmission Date: 20260118
  Serious: Yes (Other)
  Sender: DAIICHI
  Company Number: IN-AstraZeneca-CH-00957407A

PATIENT
  Sex: Female
  Weight: 52 kg

DRUGS (1)
  1. ENHERTU [Suspect]
     Active Substance: FAM-TRASTUZUMAB DERUXTECAN-NXKI
     Indication: Human epidermal growth factor receptor decreased
     Dosage: 200 MG, ONCE EVERY 3 WK
     Route: 041

REACTIONS (1)
  - Cataract [Unknown]
